FAERS Safety Report 26102537 (Version 1)
Quarter: 2025Q4

REPORT INFORMATION
  Report Type: Spontaneous
  Country: US (occurrence: US)
  Receive Date: 20251128
  Receipt Date: 20251128
  Transmission Date: 20260118
  Serious: Yes (Other)
  Sender: ABBVIE
  Company Number: US-ABBVIE-6568133

PATIENT
  Age: 33 Year
  Sex: Male

DRUGS (7)
  1. DEPAKOTE [Suspect]
     Active Substance: DIVALPROEX SODIUM
     Indication: Product used for unknown indication
     Dosage: 750 MG EVERY MORNING AND 500 MG EVERY NIGHT AT BED TIME, ER
     Route: 048
  2. DEPAKOTE [Suspect]
     Active Substance: DIVALPROEX SODIUM
     Indication: Product used for unknown indication
     Dosage: UNKNOWN, TITRATED UP, ER
     Route: 048
  3. CAFFEINE [Concomitant]
     Active Substance: CAFFEINE
     Indication: Product used for unknown indication
  4. NICOTINE [Concomitant]
     Active Substance: NICOTINE
     Indication: Product used for unknown indication
  5. CAPLYTA [Suspect]
     Active Substance: LUMATEPERONE
     Indication: Bipolar I disorder
     Route: 048
     Dates: start: 20250923, end: 20250929
  6. CAPLYTA [Suspect]
     Active Substance: LUMATEPERONE
     Indication: Bipolar I disorder
     Route: 048
     Dates: start: 20250930, end: 202510
  7. CAPLYTA [Suspect]
     Active Substance: LUMATEPERONE
     Indication: Bipolar I disorder
     Dosage: UNK, TAPER OFF
     Route: 048
     Dates: start: 202510, end: 202510

REACTIONS (2)
  - Tardive dyskinesia [Not Recovered/Not Resolved]
  - Psychotic disorder [Not Recovered/Not Resolved]

NARRATIVE: CASE EVENT DATE: 20250101
